FAERS Safety Report 4687427-8 (Version None)
Quarter: 2005Q2

REPORT INFORMATION
  Report Type: 
  Country: None (occurrence: None)
  Receive Date: 20050609
  Receipt Date: 20050609
  Transmission Date: 20051028
  Serious: Yes (Hospitalization)
  Sender: FDA-Public Use
  Company Number: None

PATIENT
  Sex: Female
  Weight: 60.2377 kg

DRUGS (9)
  1. GEMZAR [Suspect]
     Indication: PANCREATIC CARCINOMA METASTATIC
     Dosage: 1000 MG/M2 DAY 1 + 15 INTRAVENOU
     Route: 042
     Dates: start: 20050301, end: 20050525
  2. CISPLATIN 50 MG B.MYERS [Suspect]
     Indication: PANCREATIC CARCINOMA METASTATIC
     Dates: start: 20050301, end: 20050525
  3. BEVACIZUMAB 25 MG/ML GENENTECH [Suspect]
     Indication: PANCREATIC CARCINOMA METASTATIC
     Dosage: 10 MG/KG DAY 1 + 15 INTRAVENOU
     Route: 042
     Dates: start: 20050301, end: 20050525
  4. VICODIN [Concomitant]
  5. ARANESP [Concomitant]
  6. TOPROL-XL [Concomitant]
  7. BABAY ASA [Concomitant]
  8. PHENERGAN [Concomitant]
  9. LISINOPRIL [Concomitant]

REACTIONS (4)
  - APHASIA [None]
  - DEPRESSED LEVEL OF CONSCIOUSNESS [None]
  - DYSARTHRIA [None]
  - FATIGUE [None]
